FAERS Safety Report 9235860 (Version 1)
Quarter: 2013Q2

REPORT INFORMATION
  Report Type: Spontaneous
  Country: CO (occurrence: CO)
  Receive Date: 20130417
  Receipt Date: 20130417
  Transmission Date: 20140414
  Serious: Yes (Other)
  Sender: FDA-Public Use
  Company Number: CO-BAYER-2013-048246

PATIENT
  Age: 21 Year
  Sex: Male
  Weight: 64 kg

DRUGS (1)
  1. ULTRAVIST? 300 [Suspect]
     Indication: COMPUTERISED TOMOGRAM ABDOMEN
     Dosage: 70 ML, ONCE
     Dates: start: 20130209, end: 20130209

REACTIONS (4)
  - Cyanosis [Recovered/Resolved]
  - Hypoxia [Recovered/Resolved]
  - Tachycardia [Recovered/Resolved]
  - Chills [Recovered/Resolved]
